FAERS Safety Report 23480558 (Version 2)
Quarter: 2024Q1

REPORT INFORMATION
  Report Type: Report from Study
  Country: US (occurrence: US)
  Receive Date: 20240205
  Receipt Date: 20240219
  Transmission Date: 20240410
  Serious: Yes (Other)
  Sender: FDA-Public Use
  Company Number: US-ACADIA PHARMACEUTICALS INC.-ACA-2024-PIM-000357

PATIENT
  Age: 88 Year
  Sex: Male

DRUGS (20)
  1. NUPLAZID [Suspect]
     Active Substance: PIMAVANSERIN TARTRATE
     Indication: Parkinson^s disease psychosis
     Dosage: 34 MILLIGRAM, QD
     Route: 048
     Dates: start: 20240121, end: 20240124
  2. NUPLAZID [Suspect]
     Active Substance: PIMAVANSERIN TARTRATE
     Indication: Hallucination
  3. NUPLAZID [Suspect]
     Active Substance: PIMAVANSERIN TARTRATE
     Indication: Delusion
  4. LEVOTHYROXINE [Concomitant]
     Active Substance: LEVOTHYROXINE\LEVOTHYROXINE SODIUM
     Dosage: 75 MICROGRAM
  5. SINEMET CR [Concomitant]
     Active Substance: CARBIDOPA\LEVODOPA
     Dosage: 25/100
  6. LASIX [Concomitant]
     Active Substance: FUROSEMIDE
     Dosage: 20 MILLIGRAM
  7. IPRATROPIUM [Concomitant]
     Active Substance: IPRATROPIUM
     Dosage: 0.03%
  8. ACETAMINOPHEN\HYDROCODONE [Concomitant]
     Active Substance: ACETAMINOPHEN\HYDROCODONE
     Dosage: 5/325 MG
  9. TYLENOL [Concomitant]
     Active Substance: ACETAMINOPHEN
     Dosage: 650 MILLIGRAM
  10. AMLODIPINE [Concomitant]
     Active Substance: AMLODIPINE BESYLATE
     Dosage: 5 MILLIGRAM
  11. ROPINIROLE [Concomitant]
     Active Substance: ROPINIROLE
     Dosage: 0.5 MG
  12. ALBUTEROL [Concomitant]
     Active Substance: ALBUTEROL
     Dosage: 0.63MG/3ML
  13. KETOCONAZOLE [Concomitant]
     Active Substance: KETOCONAZOLE
     Dosage: 2%
  14. CLOTRIMAZOLE [Concomitant]
     Active Substance: CLOTRIMAZOLE
     Dosage: 1%
  15. CITALOPRAM [Concomitant]
     Active Substance: CITALOPRAM HYDROBROMIDE
     Dosage: 10 MILLIGRAM
  16. ALENDRONATE [Concomitant]
     Active Substance: ALENDRONATE SODIUM
     Dosage: 70 MILLIGRAM
  17. FINASTERIDE [Concomitant]
     Active Substance: FINASTERIDE
     Dosage: 5 MILLIGRAM
  18. MELATONIN [Concomitant]
     Active Substance: MELATONIN
     Dosage: 2.5 MILLIGRAM
  19. VITAMINS [Concomitant]
     Active Substance: VITAMINS
  20. TUMS [Concomitant]
     Active Substance: CALCIUM CARBONATE

REACTIONS (1)
  - Bradycardia [Recovered/Resolved]

NARRATIVE: CASE EVENT DATE: 20240123
